FAERS Safety Report 12650319 (Version 1)
Quarter: 2016Q3

REPORT INFORMATION
  Report Type: Spontaneous
  Country: US (occurrence: US)
  Receive Date: 20160814
  Receipt Date: 20160814
  Transmission Date: 20161109
  Serious: No
  Sender: FDA-Public Use
  Company Number: US-ENDO PHARMACEUTICALS INC.-2016-003848

PATIENT
  Age: 55 Year
  Sex: Female
  Weight: 54.48 kg

DRUGS (1)
  1. OXYCODONE AND ACETAMINOPHEN [Suspect]
     Active Substance: ACETAMINOPHEN\OXYCODONE HYDROCHLORIDE
     Indication: PAIN
     Dosage: 5 MG/325 MG
     Route: 048
     Dates: start: 201606, end: 20160607

REACTIONS (4)
  - Chest pain [Recovered/Resolved]
  - Rash [Not Recovered/Not Resolved]
  - Rash [Recovering/Resolving]
  - Drug ineffective [Recovering/Resolving]

NARRATIVE: CASE EVENT DATE: 201606
